FAERS Safety Report 24550197 (Version 1)
Quarter: 2024Q4

REPORT INFORMATION
  Report Type: Spontaneous
  Country: CN (occurrence: CN)
  Receive Date: 20241025
  Receipt Date: 20241025
  Transmission Date: 20250115
  Serious: Yes (Other)
  Sender: FRESENIUS KABI
  Company Number: CN-FreseniusKabi-FK202415705

PATIENT
  Age: 72 Year
  Sex: Male
  Weight: 65 kg

DRUGS (3)
  1. INTRALIPID [Suspect]
     Active Substance: EGG PHOSPHOLIPIDS\GLYCERIN\SOYBEAN OIL
     Indication: Eating disorder
     Dosage: START TIME: 20:10?DOSAGE FORM: INJECTION?ROUTE OF ADMINISTRATION: INTRAVENOUS DRIP (IVD)?THERAPY END
     Dates: start: 20241010
  2. INTRALIPID [Suspect]
     Active Substance: EGG PHOSPHOLIPIDS\GLYCERIN\SOYBEAN OIL
     Indication: Parenteral nutrition
  3. AMINO ACIDS, SOURCE UNSPECIFIED [Concomitant]
     Active Substance: AMINO ACIDS, SOURCE UNSPECIFIED
     Indication: Eating disorder
     Dosage: DOSAGE FORM: INJECTION?ROA: INTRAVENOUS DRIP (IVD)
     Dates: start: 20241010, end: 20241010

REACTIONS (9)
  - Dysphoria [Recovering/Resolving]
  - Cough [Recovering/Resolving]
  - Dyspnoea [Recovering/Resolving]
  - Tachypnoea [Recovering/Resolving]
  - Cyanosis [Recovering/Resolving]
  - Listless [Recovering/Resolving]
  - Breath sounds abnormal [Recovering/Resolving]
  - Rales [Recovering/Resolving]
  - Wheezing [Recovering/Resolving]

NARRATIVE: CASE EVENT DATE: 20241011
